FAERS Safety Report 7300470-5 (Version None)
Quarter: 2011Q1

REPORT INFORMATION
  Report Type: 
  Country: None (occurrence: None)
  Receive Date: 20110217
  Receipt Date: 20110127
  Transmission Date: 20110831
  Serious: Yes (Death, Other)
  Sender: FDA-Public Use
  Company Number: GB-ABBOTT-10P-167-0692490-00

PATIENT
  Sex: Female
  Weight: 50 kg

DRUGS (4)
  1. AMIAS TABLETS [Suspect]
     Indication: PRODUCT USED FOR UNKNOWN INDICATION
     Route: 048
  2. HUMIRA [Suspect]
     Indication: RHEUMATOID ARTHRITIS
     Route: 058
     Dates: start: 20060628
  3. DIAMORPHINE [Concomitant]
     Indication: PRODUCT USED FOR UNKNOWN INDICATION
     Route: 042
  4. RABEPRAZOLE SODIUM [Concomitant]
     Indication: PRODUCT USED FOR UNKNOWN INDICATION
     Route: 048

REACTIONS (19)
  - DIVERTICULUM [None]
  - GALLBLADDER ENLARGEMENT [None]
  - PERITONITIS [None]
  - PULMONARY ARTERIAL PRESSURE INCREASED [None]
  - PLEURAL EFFUSION [None]
  - RIGHT ATRIAL DILATATION [None]
  - MYOCARDIAL INFARCTION [None]
  - PANCREATIC ATROPHY [None]
  - INGUINAL HERNIA [None]
  - MITRAL VALVE DISEASE [None]
  - LEFT ATRIAL DILATATION [None]
  - RENAL ATROPHY [None]
  - MITRAL VALVE INCOMPETENCE [None]
  - CORONARY ARTERY THROMBOSIS [None]
  - ATRIAL FIBRILLATION [None]
  - SEPSIS [None]
  - EJECTION FRACTION DECREASED [None]
  - LARGE INTESTINAL OBSTRUCTION [None]
  - HIP ARTHROPLASTY [None]
